FAERS Safety Report 13814980 (Version 3)
Quarter: 2017Q3

REPORT INFORMATION
  Report Type: Spontaneous
  Country: US (occurrence: US)
  Receive Date: 20170731
  Receipt Date: 20170901
  Transmission Date: 20171127
  Serious: Yes (Hospitalization)
  Sender: FDA-Public Use
  Company Number: US-GILEAD-2017-0285312

PATIENT
  Age: 22 Year
  Sex: Male

DRUGS (1)
  1. GENVOYA [Suspect]
     Active Substance: COBICISTAT\ELVITEGRAVIR\EMTRICITABINE\TENOFOVIR ALAFENAMIDE FUMARATE
     Indication: PRODUCT USED FOR UNKNOWN INDICATION
     Dosage: UNK
     Route: 065
     Dates: start: 20170527, end: 20170601

REACTIONS (9)
  - Tremor [Recovering/Resolving]
  - Chills [Recovering/Resolving]
  - Nausea [Recovering/Resolving]
  - Vomiting [Recovering/Resolving]
  - Rash [Recovering/Resolving]
  - Rash pruritic [Recovering/Resolving]
  - Pyrexia [Recovering/Resolving]
  - Back pain [Recovering/Resolving]
  - Headache [Recovering/Resolving]
